FAERS Safety Report 10971797 (Version 1)
Quarter: 2015Q1

REPORT INFORMATION
  Report Type: Report from Study
  Country: TR (occurrence: TR)
  Receive Date: 20150331
  Receipt Date: 20150331
  Transmission Date: 20150721
  Serious: Yes (Hospitalization)
  Sender: FDA-Public Use
  Company Number: TR-EMD SERONO-7252242

PATIENT
  Age: 55 Year
  Sex: Female
  Weight: 61 kg

DRUGS (6)
  1. FESOTERODINE [Suspect]
     Active Substance: FESOTERODINE
     Indication: DIURETIC THERAPY
     Route: 048
     Dates: start: 2009
  2. MINOSET [Suspect]
     Active Substance: ACETAMINOPHEN
     Indication: ANALGESIC THERAPY
     Route: 048
     Dates: start: 201105
  3. COVERSYL                           /00790701/ [Suspect]
     Active Substance: PERINDOPRIL
     Indication: HYPERTENSION
     Route: 048
     Dates: start: 2009
  4. MINOSET [Suspect]
     Active Substance: ACETAMINOPHEN
     Indication: ANTIPYRESIS
  5. REBIF [Suspect]
     Active Substance: INTERFERON BETA-1A
     Indication: MULTIPLE SCLEROSIS
     Route: 058
     Dates: start: 201105
  6. LIORESAL [Suspect]
     Active Substance: BACLOFEN
     Indication: MUSCLE RELAXANT THERAPY
     Route: 048
     Dates: start: 2009

REACTIONS (2)
  - Aphthous stomatitis [Recovering/Resolving]
  - Pulmonary mass [Not Recovered/Not Resolved]

NARRATIVE: CASE EVENT DATE: 2012
